FAERS Safety Report 10081998 (Version 3)
Quarter: 2014Q2

REPORT INFORMATION
  Report Type: Spontaneous
  Country: US (occurrence: US)
  Receive Date: 20140416
  Receipt Date: 20140429
  Transmission Date: 20141212
  Serious: No
  Sender: FDA-Public Use
  Company Number: US-GILEAD-2014-0098031

PATIENT
  Sex: Male

DRUGS (3)
  1. SOVALDI [Suspect]
     Indication: PRODUCT USED FOR UNKNOWN INDICATION
     Route: 065
  2. SIMEPREVIR [Suspect]
     Indication: PRODUCT USED FOR UNKNOWN INDICATION
     Route: 065
  3. PROGRAFT [Suspect]
     Indication: LIVER TRANSPLANT
     Route: 065

REACTIONS (1)
  - Glomerular filtration rate decreased [Unknown]
